FAERS Safety Report 10756727 (Version 2)
Quarter: 2015Q1

REPORT INFORMATION
  Report Type: Report from Study
  Country: CA (occurrence: CA)
  Receive Date: 20150202
  Receipt Date: 20150204
  Transmission Date: 20150721
  Serious: Yes (Death, Hospitalization)
  Sender: FDA-Public Use
  Company Number: PHHY2015CA012210

PATIENT
  Sex: Female

DRUGS (12)
  1. CLOZARIL [Suspect]
     Active Substance: CLOZAPINE
     Indication: SCHIZOPHRENIA, PARANOID TYPE
     Dosage: UNK
     Route: 048
     Dates: start: 20130204
  2. DOCUSATE SODIUM. [Concomitant]
     Active Substance: DOCUSATE SODIUM
     Indication: PRODUCT USED FOR UNKNOWN INDICATION
     Dosage: 200 MG, AT MORNING
     Route: 065
  3. SENNOSIDE [Concomitant]
     Active Substance: SENNOSIDES
     Indication: PRODUCT USED FOR UNKNOWN INDICATION
     Dosage: 17.2 MG, AT MORNING
     Route: 065
  4. AMLODIPINE [Concomitant]
     Active Substance: AMLODIPINE BESYLATE
     Indication: PRODUCT USED FOR UNKNOWN INDICATION
     Dosage: 5 MG, AT NIGHT
     Route: 065
  5. CLOZARIL [Suspect]
     Active Substance: CLOZAPINE
     Dosage: 450 MG, AT NIGHT
     Route: 048
     Dates: start: 201405
  6. RAMIPRIL. [Concomitant]
     Active Substance: RAMIPRIL
     Indication: HYPERTENSION
     Dosage: 100 MG, AT MORNING
     Route: 065
  7. PROPYLTHIOURACIL. [Concomitant]
     Active Substance: PROPYLTHIOURACIL
     Indication: PRODUCT USED FOR UNKNOWN INDICATION
     Dosage: 100 MG, BID
     Route: 065
  8. CLOZARIL [Suspect]
     Active Substance: CLOZAPINE
     Dosage: 200 MG, Q8H
     Route: 048
  9. TOPIRAMATE. [Concomitant]
     Active Substance: TOPIRAMATE
     Indication: PRODUCT USED FOR UNKNOWN INDICATION
     Dosage: 300 MG, (100 MG AT MORNING AND 200 MG AT NIGHT)
     Route: 065
  10. CLOZAPINE. [Concomitant]
     Active Substance: CLOZAPINE
     Indication: PRODUCT USED FOR UNKNOWN INDICATION
     Dosage: 150 MG, UNK
     Route: 065
  11. ROSUVASTATINE [Concomitant]
     Active Substance: ROSUVASTATIN
     Indication: PRODUCT USED FOR UNKNOWN INDICATION
     Dosage: 20 MG, AT NIGHT
     Route: 065
  12. OLANZAPIN [Concomitant]
     Active Substance: OLANZAPINE
     Indication: PRODUCT USED FOR UNKNOWN INDICATION
     Dosage: 30 MG, AT NIGHT
     Route: 065

REACTIONS (5)
  - Death [Fatal]
  - Blood triglycerides increased [Unknown]
  - Schizophrenia [Unknown]
  - Sedation [Unknown]
  - Blood pressure increased [Unknown]
